FAERS Safety Report 4358677-5 (Version None)
Quarter: 2004Q2

REPORT INFORMATION
  Report Type: 
  Country: None (occurrence: None)
  Receive Date: 20040511
  Receipt Date: 20040429
  Transmission Date: 20050107
  Serious: Yes (Death, Hospitalization)
  Sender: FDA-Public Use
  Company Number: 04P-163-0257272-00

PATIENT
  Age: 83 Year
  Sex: Female

DRUGS (1)
  1. HUMIRA [Suspect]
     Dosage: 40 MG, SUBCUTANEOUS
     Route: 058
     Dates: start: 20030301, end: 20040201

REACTIONS (5)
  - ABASIA [None]
  - CYSTITIS [None]
  - DECUBITUS ULCER [None]
  - HYPONATRAEMIA [None]
  - SEPSIS [None]
